FAERS Safety Report 4294888-5 (Version None)
Quarter: 2004Q1

REPORT INFORMATION
  Report Type: 
  Country: None (occurrence: None)
  Receive Date: 20040216
  Receipt Date: 20030211
  Transmission Date: 20041129
  Serious: No
  Sender: FDA-Public Use
  Company Number: US-GLAXOSMITHKLINE-A0396255A

PATIENT
  Age: 59 Year
  Sex: Female

DRUGS (5)
  1. LAMICTAL [Suspect]
     Indication: PARTIAL SEIZURES
     Dosage: 150MG IN THE MORNING
     Route: 048
     Dates: start: 19960101
  2. AMBIEN [Concomitant]
  3. ADVIL [Concomitant]
  4. MAALOX [Concomitant]
  5. GAVISCON [Concomitant]

REACTIONS (5)
  - ARTHRALGIA [None]
  - CONVULSION [None]
  - DEPRESSION [None]
  - DYSPEPSIA [None]
  - HEADACHE [None]
